FAERS Safety Report 5991842-X (Version None)
Quarter: 2008Q4

REPORT INFORMATION
  Report Type: 
  Country: None (occurrence: None)
  Receive Date: 20081211
  Receipt Date: 20081209
  Transmission Date: 20090506
  Serious: Yes (Death)
  Sender: FDA-Public Use
  Company Number: CA-B.I. PHARMACEUTICALS,INC./RIDGEFIELD-2008-CN-00606CN

PATIENT
  Sex: Male

DRUGS (5)
  1. SPIRIVA [Suspect]
     Indication: CHRONIC OBSTRUCTIVE PULMONARY DISEASE
  2. SYMBICORT [Concomitant]
  3. PREDNISONE TAB [Concomitant]
  4. DIGOXIN [Concomitant]
  5. RAMIPRIL [Concomitant]

REACTIONS (2)
  - APHONIA [None]
  - DEATH [None]
